FAERS Safety Report 25239080 (Version 1)
Quarter: 2025Q2

REPORT INFORMATION
  Report Type: Spontaneous
  Country: IN (occurrence: IN)
  Receive Date: 20250425
  Receipt Date: 20250425
  Transmission Date: 20250716
  Serious: Yes (Death, Hospitalization)
  Sender: MYLAN
  Company Number: IN-MYLANLABS-2025M1033530

PATIENT
  Age: 61 Year
  Sex: Female

DRUGS (16)
  1. METHOTREXATE [Suspect]
     Active Substance: METHOTREXATE
     Indication: Rheumatoid arthritis
  2. METHOTREXATE [Suspect]
     Active Substance: METHOTREXATE
     Route: 065
  3. METHOTREXATE [Suspect]
     Active Substance: METHOTREXATE
     Route: 065
  4. METHOTREXATE [Suspect]
     Active Substance: METHOTREXATE
  5. TELMISARTAN [Suspect]
     Active Substance: TELMISARTAN
     Indication: Hypertension
  6. TELMISARTAN [Suspect]
     Active Substance: TELMISARTAN
     Route: 065
  7. TELMISARTAN [Suspect]
     Active Substance: TELMISARTAN
     Route: 065
  8. TELMISARTAN [Suspect]
     Active Substance: TELMISARTAN
  9. ASPIRIN\ATORVASTATIN [Suspect]
     Active Substance: ASPIRIN\ATORVASTATIN
     Indication: Cerebrovascular accident
  10. ASPIRIN\ATORVASTATIN [Suspect]
     Active Substance: ASPIRIN\ATORVASTATIN
     Route: 065
  11. ASPIRIN\ATORVASTATIN [Suspect]
     Active Substance: ASPIRIN\ATORVASTATIN
     Route: 065
  12. ASPIRIN\ATORVASTATIN [Suspect]
     Active Substance: ASPIRIN\ATORVASTATIN
  13. FOLIC ACID [Concomitant]
     Active Substance: FOLIC ACID
     Indication: Supplementation therapy
  14. FOLIC ACID [Concomitant]
     Active Substance: FOLIC ACID
     Route: 065
  15. FOLIC ACID [Concomitant]
     Active Substance: FOLIC ACID
     Route: 065
  16. FOLIC ACID [Concomitant]
     Active Substance: FOLIC ACID

REACTIONS (3)
  - Toxic epidermal necrolysis [Fatal]
  - Hepatic failure [Fatal]
  - Renal failure [Fatal]
